FAERS Safety Report 8987001 (Version 4)
Quarter: 2013Q1

REPORT INFORMATION
  Report Type: Spontaneous
  Country: US (occurrence: US)
  Receive Date: 20121226
  Receipt Date: 20130125
  Transmission Date: 20140127
  Serious: Yes (Death, Hospitalization)
  Sender: FDA-Public Use
  Company Number: US-JNJFOC-20121210017

PATIENT
  Age: 66 Year
  Sex: Female
  Weight: 113.63 kg

DRUGS (5)
  1. REMICADE [Suspect]
     Indication: CROHN^S DISEASE
     Route: 042
     Dates: start: 200910, end: 201105
  2. PROPRANOLOL [Concomitant]
  3. CITALOPRAM [Concomitant]
     Indication: ANXIETY
  4. PENTASA [Concomitant]
     Indication: CROHN^S DISEASE
     Route: 048
     Dates: start: 2008
  5. LANTUS INSULIN [Concomitant]
     Dates: start: 2009

REACTIONS (2)
  - Respiratory failure [Fatal]
  - Glioblastoma [Fatal]
